FAERS Safety Report 23113935 (Version 1)
Quarter: 2023Q4

REPORT INFORMATION
  Report Type: Spontaneous
  Country: US (occurrence: US)
  Receive Date: 20231027
  Receipt Date: 20231027
  Transmission Date: 20240110
  Serious: No
  Sender: FDA-Public Use
  Company Number: US-ABBVIE-5455949

PATIENT
  Age: 22 Year
  Sex: Female

DRUGS (1)
  1. VRAYLAR [Suspect]
     Active Substance: CARIPRAZINE
     Indication: Bipolar II disorder
     Dosage: FORM STRENGTH: 1.5 MILLIGRAM?START DATE TEXT: SUMMER 2023
     Route: 048
     Dates: start: 2023, end: 2023

REACTIONS (2)
  - Lactation disorder [Unknown]
  - Breast pain [Unknown]

NARRATIVE: CASE EVENT DATE: 20230101
